FAERS Safety Report 6084676-1 (Version None)
Quarter: 2009Q1

REPORT INFORMATION
  Report Type: 
  Country: None (occurrence: None)
  Receive Date: 20090217
  Receipt Date: 20090129
  Transmission Date: 20090719
  Serious: Yes (Life-Threatening, Disabling, Other)
  Sender: FDA-Public Use
  Company Number: 000243

PATIENT
  Age: 62 Year
  Sex: Male

DRUGS (8)
  1. LACOSAMIDE [Suspect]
     Indication: EPILEPSY
     Dosage: TABLET 400 MG BID ORAL
     Route: 048
  2. LEVOTHYROXINE SODIUM [Concomitant]
  3. RAMIPRIL [Concomitant]
  4. POTASSIUM IODIDE (POTASSIUM IODIDE) [Concomitant]
  5. OXCARBAZEPINE [Concomitant]
  6. TOPIRAMATE [Concomitant]
  7. L-THYROXIN-NATRIUM (LEVOTHYROXINE SODIUM) [Concomitant]
  8. LOVASTATIN [Concomitant]

REACTIONS (3)
  - CEREBRAL HAEMORRHAGE [None]
  - CONVULSION [None]
  - FALL [None]
